FAERS Safety Report 9207132 (Version 1)
Quarter: 2013Q1

REPORT INFORMATION
  Report Type: Spontaneous
  Country: US (occurrence: None)
  Receive Date: 20120802
  Receipt Date: 20120802
  Transmission Date: 20140127
  Serious: Yes (Other)
  Sender: FDA-Public Use
  Company Number: 2012031407

PATIENT
  Sex: Male

DRUGS (1)
  1. CARIMUNE (IMMUNE GLOBULIN INTRAVENOUS (HUMAN) [Suspect]
     Route: 042

REACTIONS (1)
  - Meningitis aseptic [None]
